FAERS Safety Report 9490081 (Version 1)
Quarter: 2013Q3

REPORT INFORMATION
  Report Type: Spontaneous
  Country: US (occurrence: US)
  Receive Date: 20130829
  Receipt Date: 20130829
  Transmission Date: 20140515
  Serious: No
  Sender: FDA-Public Use
  Company Number: US-B.I. PHARMACEUTICALS,INC./RIDGEFIELD-2013-BI-26314BP

PATIENT
  Age: 74 Year
  Sex: Male

DRUGS (6)
  1. COMBIVENT [Suspect]
     Indication: CHRONIC OBSTRUCTIVE PULMONARY DISEASE
     Dosage: STRENGTH: 20 MCG / 100 MCG; DAILY DOSE: 80 MCG/400 MCG
     Route: 055
     Dates: start: 20130808
  2. METOPROLOL [Concomitant]
     Indication: CARDIAC DISORDER
     Dosage: 50 MG
  3. DILTIAZEM [Concomitant]
     Indication: CARDIAC DISORDER
  4. XANAX [Concomitant]
     Indication: ANXIETY
  5. ASPIRIN [Concomitant]
     Indication: CARDIAC DISORDER
     Dosage: 81 MG
  6. OMEPRAZOLE [Concomitant]
     Indication: DYSPEPSIA

REACTIONS (3)
  - Dyspnoea [Not Recovered/Not Resolved]
  - Dizziness [Not Recovered/Not Resolved]
  - Choking [Not Recovered/Not Resolved]
